FAERS Safety Report 6144697-7 (Version None)
Quarter: 2009Q2

REPORT INFORMATION
  Report Type: 
  Country: None (occurrence: None)
  Receive Date: 20090406
  Receipt Date: 20090330
  Transmission Date: 20091009
  Serious: Yes (Other)
  Sender: FDA-Public Use
  Company Number: B0567414A

PATIENT
  Sex: Male

DRUGS (1)
  1. AUGMENTIN '125' [Suspect]
     Indication: TOOTH ABSCESS
     Route: 048

REACTIONS (4)
  - HEPATITIS [None]
  - MALAISE [None]
  - NAUSEA [None]
  - YELLOW SKIN [None]
